FAERS Safety Report 7997128-6 (Version None)
Quarter: 2011Q4

REPORT INFORMATION
  Report Type: 
  Country: None (occurrence: None)
  Receive Date: 20111221
  Receipt Date: 20111212
  Transmission Date: 20120403
  Serious: Yes (Hospitalization, Other)
  Sender: FDA-Public Use
  Company Number: US-ASTELLAS-2011US007078

PATIENT
  Sex: Male
  Weight: 61 kg

DRUGS (40)
  1. GUAIFENESIN [Concomitant]
     Indication: COUGH
     Dosage: 300 MG, Q6 HOURS, PRN
     Route: 048
  2. DOCUSATE SODIUM W/SENNA [Concomitant]
     Indication: CONSTIPATION
     Dosage: 2 DF, BID, PRN
     Route: 048
  3. GLUCOSAMINE COMPLEX [Concomitant]
     Indication: VITAMIN SUPPLEMENTATION
     Dosage: 2 DF, BID
     Route: 048
  4. METHOCARBAMOL [Concomitant]
     Indication: PRODUCT USED FOR UNKNOWN INDICATION
     Dosage: 500 MG, Q8 HOURS
     Route: 048
  5. OAT BRAN [Concomitant]
     Dosage: 1 DF, UID/QD
     Route: 048
  6. LOVASTATIN [Concomitant]
     Indication: BLOOD CHOLESTEROL
     Dosage: 20 MG, QHS
     Route: 048
  7. COMPAZINE [Concomitant]
     Indication: NAUSEA
     Dosage: 10 MG, Q6 HOURS, PRN
     Route: 048
  8. SENNOSIDES DOCUSATE SODIUM [Concomitant]
     Indication: PRODUCT USED FOR UNKNOWN INDICATION
     Dosage: 3 DF, BID
     Route: 048
  9. ERLOTINIB HYDROCHLORIDE [Suspect]
     Dosage: 150 MG, UID/QD
     Route: 048
  10. DASATINIB [Suspect]
     Indication: NON-SMALL CELL LUNG CANCER METASTATIC
     Dosage: 50 MG, UID/QD
     Route: 048
     Dates: start: 20110514, end: 20111127
  11. ACETAMINOPHEN AND HYDROCODONE BITARTRATE [Concomitant]
     Indication: PAIN
     Dosage: 1 DF, Q6 HOURS
     Route: 048
  12. ASPIRIN [Concomitant]
     Indication: PRODUCT USED FOR UNKNOWN INDICATION
     Dosage: 81 MG, UID/QD
     Route: 048
  13. LOTENSIN HCT [Concomitant]
     Indication: BLOOD PRESSURE
     Dosage: 10/6.75MG, UID/QD
     Route: 048
  14. BENZONATATE [Concomitant]
     Indication: COUGH
     Dosage: 100 MG, Q6 HOURS, PRN
     Route: 048
  15. CALCIUM [Concomitant]
     Indication: MINERAL SUPPLEMENTATION
     Dosage: UNK
     Route: 048
  16. DENOSUMAB [Concomitant]
     Indication: METASTASES TO BONE
     Dosage: 120 MG, MONTHLY
     Route: 058
  17. SODIUM CHLORIDE [Concomitant]
     Dosage: 10 ML, Q4 HOURS, PRN
     Route: 042
  18. ERLOTINIB HYDROCHLORIDE [Suspect]
     Dosage: 150 MG, UID/QD
     Route: 048
  19. DASATINIB [Suspect]
     Dosage: 20 MG, UID/QD
     Route: 048
  20. IPRATROPIUM BROMIDE [Concomitant]
     Dosage: 0.5 MG, Q6 HOURS PRN
  21. ZOLPIDEM [Concomitant]
     Indication: SLEEP DISORDER
     Dosage: 5 MG, 1-2 DF QHS, PRN
     Route: 048
  22. CERUMENEX [Concomitant]
     Indication: CERUMEN IMPACTION
     Dosage: 1 DROPS, PRN
     Route: 065
  23. NASONEX [Concomitant]
     Dosage: 2 DF, BID
     Route: 045
  24. AMBIEN [Concomitant]
     Indication: SLEEP DISORDER
     Dosage: 5 MG, QHS
     Route: 048
  25. SODIUM CHLORIDE [Concomitant]
     Indication: PRODUCT USED FOR UNKNOWN INDICATION
     Dosage: 10 ML, Q6 HOURS
     Route: 042
  26. ERLOTINIB HYDROCHLORIDE [Suspect]
     Indication: NON-SMALL CELL LUNG CANCER METASTATIC
     Dosage: 150 MG, UID/QD
     Route: 048
     Dates: start: 20110514, end: 20111130
  27. DASATINIB [Suspect]
     Dosage: 20 MG, UID/QD
     Route: 048
  28. DEXTROMETHORPHAN W/GUAIFENESIN [Concomitant]
     Indication: COUGH
     Dosage: 15 ML, Q6 HOURS
     Route: 048
  29. NALOXONE [Concomitant]
     Indication: PRODUCT USED FOR UNKNOWN INDICATION
     Dosage: 0.4 MG, PRN
     Route: 042
  30. DASATINIB [Suspect]
     Dosage: 50 MG, UID/QD
     Route: 048
  31. IPRATROPIUM BROMIDE [Concomitant]
     Indication: DYSPNOEA
     Dosage: 2.5 ML, Q6 HOURS, PRN
     Route: 055
  32. IBUPROFEN (ADVIL) [Concomitant]
     Indication: MUSCULOSKELETAL STIFFNESS
     Dosage: 200 MG, Q6 HOURS
     Route: 048
  33. MULTI-VITAMIN [Concomitant]
     Indication: VITAMIN SUPPLEMENTATION
     Dosage: 1 DF, UID/QD
     Route: 048
  34. OAT BRAN [Concomitant]
     Indication: VITAMIN SUPPLEMENTATION
     Dosage: 2 DF, UID/QD
     Route: 048
  35. SODIUM CHLORIDE [Concomitant]
     Dosage: 10 ML, Q8 HOURS
     Route: 042
  36. SODIUM CHLORIDE [Concomitant]
     Dosage: 10 ML, UID/QD
     Route: 042
  37. DASATINIB [Suspect]
     Dosage: 20 MG, UID/QD
     Route: 048
     Dates: start: 20110514, end: 20111127
  38. LOVAZA [Concomitant]
     Indication: VITAMIN SUPPLEMENTATION
     Dosage: 1000 MG, BID
     Route: 048
  39. NASONEX [Concomitant]
     Indication: ALLERGY PROPHYLAXIS
     Dosage: 2 DF, PRN
     Route: 048
  40. SENNA [Concomitant]
     Indication: CONSTIPATION
     Dosage: 1 DF, PRN
     Route: 048

REACTIONS (11)
  - PNEUMONIA [None]
  - PULMONARY HYPERTENSION [None]
  - DECREASED APPETITE [None]
  - RASH [None]
  - MALIGNANT PLEURAL EFFUSION [None]
  - ANXIETY [None]
  - ASTHENIA [None]
  - DEEP VEIN THROMBOSIS [None]
  - PULMONARY EMBOLISM [None]
  - HYPOXIA [None]
  - DYSPNOEA [None]
